FAERS Safety Report 9474270 (Version 1)
Quarter: 2013Q3

REPORT INFORMATION
  Report Type: Spontaneous
  Country: FR (occurrence: None)
  Receive Date: 20130820
  Receipt Date: 20130820
  Transmission Date: 20140515
  Serious: Yes (Hospitalization)
  Sender: FDA-Public Use
  Company Number: TPA2013A07651

PATIENT
  Age: 82 Year
  Sex: Male

DRUGS (4)
  1. ADENURIC (FEBUXOSTAT) [Suspect]
     Indication: GOUT
     Route: 048
     Dates: start: 20130720, end: 20130730
  2. OFLOCET (OFLOCET) [Concomitant]
  3. DALACINE (CLINDAMYCIN HYDROCHLORIDE) [Concomitant]
  4. PARACETAMOL (PARACETAMOL) [Concomitant]

REACTIONS (5)
  - Purpura [None]
  - Asthenia [None]
  - Thrombocytopenia [None]
  - Anaemia [None]
  - Rash maculo-papular [None]
